FAERS Safety Report 25792848 (Version 1)
Quarter: 2025Q3

REPORT INFORMATION
  Report Type: Spontaneous
  Country: CH (occurrence: CH)
  Receive Date: 20250911
  Receipt Date: 20250911
  Transmission Date: 20251021
  Serious: Yes (Death)
  Sender: ACERUS PHARMACEUTICALS CORPORATION
  Company Number: CH-ACERUSPHRM-2025-CH-000001

PATIENT
  Age: 38 Year
  Sex: Male

DRUGS (7)
  1. TESTOSTERONE [Suspect]
     Active Substance: TESTOSTERONE
     Indication: Substance use
     Route: 048
  2. NANDROLONE PHENPROPIONATE [Suspect]
     Active Substance: NANDROLONE PHENPROPIONATE
     Indication: Product used for unknown indication
  3. INSULIN NOS [Suspect]
     Active Substance: INSULIN NOS
     Indication: Product used for unknown indication
  4. SOMATROPIN [Suspect]
     Active Substance: SOMATROPIN
     Indication: Product used for unknown indication
  5. TESTOSTERONE [Concomitant]
     Active Substance: TESTOSTERONE
     Indication: Steroid dependence
  6. TAMOXIFEN [Concomitant]
     Active Substance: TAMOXIFEN
     Indication: Steroid dependence
     Route: 048
  7. HUMAN CHORIONIC GONADOTROPIN [Concomitant]
     Active Substance: GONADOTROPHIN, CHORIONIC
     Indication: Steroid dependence
     Route: 058

REACTIONS (3)
  - Toxic cardiomyopathy [Fatal]
  - Hypogonadism male [Fatal]
  - Steroid dependence [Fatal]
